APPROVED DRUG PRODUCT: GENCEPT 10/11-21
Active Ingredient: ETHINYL ESTRADIOL; NORETHINDRONE
Strength: 0.035MG,0.035MG;0.5MG,1MG
Dosage Form/Route: TABLET;ORAL-21
Application: A072694 | Product #001
Applicant: BARR LABORATORIES INC
Approved: Feb 28, 1992 | RLD: No | RS: No | Type: DISCN